FAERS Safety Report 16669209 (Version 4)
Quarter: 2020Q1

REPORT INFORMATION
  Report Type: Spontaneous
  Country: US (occurrence: US)
  Receive Date: 20190805
  Receipt Date: 20200127
  Transmission Date: 20200409
  Serious: No
  Sender: FDA-Public Use
  Company Number: US-JNJFOC-20190804368

PATIENT
  Sex: Female
  Weight: 71.73 kg

DRUGS (8)
  1. ZANTAC [Concomitant]
     Active Substance: RANITIDINE HYDROCHLORIDE
  2. XARELTO [Suspect]
     Active Substance: RIVAROXABAN
     Indication: CEREBRAL VENOUS SINUS THROMBOSIS
     Route: 048
     Dates: start: 20190716, end: 20200101
  3. CHLOR-TRIMETON [Suspect]
     Active Substance: CHLORPHENIRAMINE MALEATE
     Indication: BURNING SENSATION
  4. XANAX [Concomitant]
     Active Substance: ALPRAZOLAM
     Indication: ANXIETY
  5. CHLOR-TRIMETON [Suspect]
     Active Substance: CHLORPHENIRAMINE MALEATE
     Indication: PRURITUS
  6. CHLOR-TRIMETON [Suspect]
     Active Substance: CHLORPHENIRAMINE MALEATE
     Indication: SENSORY DISTURBANCE
     Dosage: 2MG, ACHIEVED BY SPLITTING A 4MG TABLET, TWICE DAILY
     Route: 065
     Dates: start: 2019, end: 2019
  7. CHLOR-TRIMETON [Suspect]
     Active Substance: CHLORPHENIRAMINE MALEATE
     Indication: PARAESTHESIA
  8. ZYRTEC [Concomitant]
     Active Substance: CETIRIZINE HYDROCHLORIDE

REACTIONS (8)
  - Sensory disturbance [Recovered/Resolved]
  - Somnolence [Unknown]
  - Acne [Unknown]
  - Gastrooesophageal reflux disease [Not Recovered/Not Resolved]
  - Muscle twitching [Recovered/Resolved]
  - Burning sensation [Not Recovered/Not Resolved]
  - Paraesthesia [Not Recovered/Not Resolved]
  - Pruritus [Recovered/Resolved]

NARRATIVE: CASE EVENT DATE: 2019
